FAERS Safety Report 13224875 (Version 3)
Quarter: 2017Q2

REPORT INFORMATION
  Report Type: Spontaneous
  Country: US (occurrence: US)
  Receive Date: 20170213
  Receipt Date: 20170529
  Transmission Date: 20170830
  Serious: No
  Sender: FDA-Public Use
  Company Number: US-TEVA-731349ACC

PATIENT
  Age: 63 Year
  Sex: Female

DRUGS (8)
  1. COPAXONE [Suspect]
     Active Substance: GLATIRAMER ACETATE
     Indication: MULTIPLE SCLEROSIS
     Route: 058
     Dates: start: 20141010
  2. COPAXONE [Suspect]
     Active Substance: GLATIRAMER ACETATE
     Dosage: PREFILLED SYRINGE
     Route: 058
     Dates: start: 20141010
  3. CRANBERRY 450MG [Concomitant]
  4. VITAMIN D 1000UNIT [Concomitant]
     Dosage: FORM STRENGTH: 1000 UNIT
  5. MULTIVITAMIN [Concomitant]
     Active Substance: VITAMINS
  6. SUPER B COMPLEX [Concomitant]
     Active Substance: CYANOCOBALAMIN\DEXPANTHENOL\NIACINAMIDE\PYRIDOXINE HYDROCHLORIDE\RIBOFLAVIN 5^-PHOSPHATE SODIUM\THIAMINE HYDROCHLORIDE\VITAMIN B COMPLEX
  7. FISH OIL CAP 1000 MG [Concomitant]
  8. CALCIUM 600 MG [Concomitant]

REACTIONS (3)
  - Groin pain [Unknown]
  - Injection site pain [Not Recovered/Not Resolved]
  - Abdominal pain [Unknown]

NARRATIVE: CASE EVENT DATE: 201612
